FAERS Safety Report 10361715 (Version 1)
Quarter: 2014Q3

REPORT INFORMATION
  Report Type: Report from Study
  Country: US (occurrence: US)
  Receive Date: 20140805
  Receipt Date: 20140805
  Transmission Date: 20150326
  Serious: Yes (Other)
  Sender: FDA-Public Use
  Company Number: US-ROCHE-1389538

PATIENT
  Sex: Male

DRUGS (4)
  1. COPEGUS [Suspect]
     Active Substance: RIBAVIRIN
     Indication: HEPATITIS C
     Route: 065
  2. FLOMAX (UNITED STATES) [Concomitant]
  3. GLIPIZIDE. [Concomitant]
     Active Substance: GLIPIZIDE
  4. PEGASYS [Suspect]
     Active Substance: PEGINTERFERON ALFA-2A
     Indication: HEPATITIS C
     Dosage: 180 MCG/ML
     Route: 058

REACTIONS (3)
  - Hepatic cirrhosis [Unknown]
  - Thrombocytopenia [Unknown]
  - Pancytopenia [Unknown]
